FAERS Safety Report 12647951 (Version 2)
Quarter: 2017Q1

REPORT INFORMATION
  Report Type: Report from Study
  Country: US (occurrence: US)
  Receive Date: 20160812
  Receipt Date: 20170216
  Transmission Date: 20170428
  Serious: Yes (Hospitalization, Other)
  Sender: FDA-Public Use
  Company Number: US-AMGEN-USASL2016101847

PATIENT
  Age: 57 Year
  Sex: Female

DRUGS (2)
  1. NPLATE [Suspect]
     Active Substance: ROMIPLOSTIM
     Indication: PLATELET COUNT DECREASED
     Dosage: UNK
     Route: 065
     Dates: start: 201603, end: 201605
  2. NPLATE [Suspect]
     Active Substance: ROMIPLOSTIM
     Indication: IMMUNE THROMBOCYTOPENIC PURPURA

REACTIONS (10)
  - Chronic myeloid leukaemia [Unknown]
  - Platelet count decreased [Unknown]
  - Hepatic enzyme increased [Recovered/Resolved]
  - Full blood count decreased [Unknown]
  - Activities of daily living impaired [Unknown]
  - Pneumonia [Unknown]
  - Gastroenteritis viral [Unknown]
  - Dehydration [Unknown]
  - Muscular weakness [Unknown]
  - Chest pain [Unknown]

NARRATIVE: CASE EVENT DATE: 201605
